FAERS Safety Report 19086558 (Version 1)
Quarter: 2021Q2

REPORT INFORMATION
  Report Type: Spontaneous
  Country: US (occurrence: US)
  Receive Date: 20210402
  Receipt Date: 20210402
  Transmission Date: 20210717
  Serious: Yes (Life-Threatening, Hospitalization)
  Sender: FDA-Public Use
  Company Number: US-MYLANLABS-2021M1018948

PATIENT
  Age: 29 Year
  Sex: Male

DRUGS (2)
  1. NALOXONE [Suspect]
     Active Substance: NALOXONE
     Dosage: 8 MILLIGRAM, REPEATED DOSES
     Route: 065
  2. NALOXONE [Suspect]
     Active Substance: NALOXONE
     Indication: INTENTIONAL OVERDOSE
     Dosage: 2 MILLIGRAM, INITIAL DOSE
     Route: 065

REACTIONS (3)
  - Non-cardiogenic pulmonary oedema [Recovering/Resolving]
  - Hypoxia [Recovering/Resolving]
  - Mental status changes [Recovering/Resolving]
